FAERS Safety Report 12109406 (Version 1)
Quarter: 2016Q1

REPORT INFORMATION
  Report Type: Spontaneous
  Country: US (occurrence: None)
  Receive Date: 20160222
  Receipt Date: 20160222
  Transmission Date: 20160526
  Serious: Yes (Hospitalization)
  Sender: FDA-Public Use
  Company Number: None

PATIENT
  Age: 65 Year
  Sex: Male

DRUGS (18)
  1. LACTATED RINGERS [Concomitant]
     Active Substance: CALCIUM CHLORIDE\POTASSIUM CHLORIDE\SODIUM CHLORIDE\SODIUM LACTATE
  2. PIPERACILLIN/TAZOBACTAM [Concomitant]
     Active Substance: PIPERACILLIN SODIUM\TAZOBACTAM SODIUM
  3. DEXTROSE. [Concomitant]
     Active Substance: DEXTROSE
  4. HYDROMORPHONE [Concomitant]
     Active Substance: HYDROMORPHONE
  5. INSULIN ASPART [Concomitant]
     Active Substance: INSULIN ASPART
  6. KETOROLAC [Concomitant]
     Active Substance: KETOROLAC\KETOROLAC TROMETHAMINE
  7. SODIUM BICARBONATE. [Concomitant]
     Active Substance: SODIUM BICARBONATE
  8. PROPOFOL. [Concomitant]
     Active Substance: PROPOFOL
  9. CANAGLIFLOZIN [Suspect]
     Active Substance: CANAGLIFLOZIN
     Indication: HYPERGLYCAEMIA
     Route: 048
     Dates: end: 20151021
  10. BISACODYL. [Concomitant]
     Active Substance: BISACODYL
  11. HEPARIN [Concomitant]
     Active Substance: HEPARIN SODIUM
  12. LABETALOL [Concomitant]
     Active Substance: LABETALOL\LABETALOL HYDROCHLORIDE
  13. LIDOCAINE. [Concomitant]
     Active Substance: LIDOCAINE
  14. FENTANYL. [Concomitant]
     Active Substance: FENTANYL
  15. VANCOMYCIN [Concomitant]
     Active Substance: VANCOMYCIN
  16. DIATRIZOATE [Concomitant]
     Active Substance: DIATRIZOATE MEGLUMINE
  17. DIPHENHYDRAMINE. [Concomitant]
     Active Substance: DIPHENHYDRAMINE
  18. FAMOTIDINE. [Concomitant]
     Active Substance: FAMOTIDINE

REACTIONS (4)
  - Metabolic acidosis [None]
  - Tachycardia [None]
  - Ketoacidosis [None]
  - Tachypnoea [None]

NARRATIVE: CASE EVENT DATE: 20151025
